FAERS Safety Report 18257039 (Version 1)
Quarter: 2020Q3

REPORT INFORMATION
  Report Type: Spontaneous
  Country: US (occurrence: US)
  Receive Date: 20200911
  Receipt Date: 20200911
  Transmission Date: 20201103
  Serious: Yes (Other)
  Sender: FDA-Public Use
  Company Number: US-STRIDES ARCOLAB LIMITED-2019SP008552

PATIENT
  Age: 70 Year
  Sex: Male
  Weight: 80 kg

DRUGS (10)
  1. TACROLIMUS. [Suspect]
     Active Substance: TACROLIMUS
     Indication: STOMATITIS
     Dosage: 5 MG, BID
     Route: 048
     Dates: start: 201612
  2. METHYLPREDNISOLONE. [Concomitant]
     Active Substance: METHYLPREDNISOLONE
     Indication: STOMATITIS
     Dosage: 1 MG/KG, UNK
     Route: 042
  3. PREDNISONE. [Concomitant]
     Active Substance: PREDNISONE
     Dosage: 1 MG/KG, DAILY
     Route: 065
  4. INFLIXIMAB [Concomitant]
     Active Substance: INFLIXIMAB
     Indication: STOMATITIS
     Dosage: 5 MG/KG, EVERY 4 WEEKS
     Route: 065
     Dates: start: 201604
  5. LIDOCAINE. [Concomitant]
     Active Substance: LIDOCAINE
     Indication: STOMATITIS
     Dosage: UNK
     Route: 065
  6. TACROLIMUS. [Suspect]
     Active Substance: TACROLIMUS
     Dosage: 2 MG, BID
     Route: 048
     Dates: end: 2017
  7. PREDNISONE. [Concomitant]
     Active Substance: PREDNISONE
     Indication: STOMATITIS
     Dosage: 10 MG PER DAY
     Route: 065
  8. TACROLIMUS. [Suspect]
     Active Substance: TACROLIMUS
     Dosage: 0.06 MG/KG, BID
     Route: 048
     Dates: start: 201612
  9. DEXAMETHASONE. [Concomitant]
     Active Substance: DEXAMETHASONE
     Indication: STOMATITIS
     Dosage: UNK
     Route: 048
  10. TACROLIMUS. [Suspect]
     Active Substance: TACROLIMUS
     Dosage: 3MG IN THE MORNING AND 4MG IN THE EVENING
     Route: 048

REACTIONS (2)
  - Off label use [Unknown]
  - Nephropathy toxic [Unknown]
